FAERS Safety Report 22188682 (Version 1)
Quarter: 2023Q2

REPORT INFORMATION
  Report Type: Other
  Country: US (occurrence: US)
  Receive Date: 20230409
  Receipt Date: 20230409
  Transmission Date: 20230721
  Serious: Yes (Death)
  Sender: FDA-Public Use
  Company Number: US-ALVOGEN-2023090167

PATIENT
  Age: 55 Year
  Sex: Female

DRUGS (6)
  1. LABETALOL [Suspect]
     Active Substance: LABETALOL\LABETALOL HYDROCHLORIDE
     Indication: Suicide attempt
  2. METOPROLOL [Suspect]
     Active Substance: METOPROLOL
     Indication: Suicide attempt
  3. DILTIAZEM [Suspect]
     Active Substance: DILTIAZEM
     Indication: Suicide attempt
  4. KETAMINE [Suspect]
     Active Substance: KETAMINE
     Indication: Suicide attempt
  5. TRAMADOL [Suspect]
     Active Substance: TRAMADOL
     Indication: Suicide attempt
  6. ALCOHOL [Suspect]
     Active Substance: ALCOHOL
     Indication: Suicide attempt

REACTIONS (1)
  - Completed suicide [Fatal]
